FAERS Safety Report 9032616 (Version 2)
Quarter: 2014Q1

REPORT INFORMATION
  Report Type: Report from Study
  Country: BD (occurrence: BD)
  Receive Date: 20130122
  Receipt Date: 20140205
  Transmission Date: 20141002
  Serious: Yes (Death, Hospitalization)
  Sender: FDA-Public Use
  Company Number: PHHY2013BD005500

PATIENT
  Age: 85 Year
  Sex: Female

DRUGS (2)
  1. ACLASTA [Suspect]
     Indication: OSTEOPOROSIS
     Dosage: UNK UKN, UNK
     Route: 042
     Dates: start: 20100612
  2. ANTIHYPERTENSIVE DRUGS [Concomitant]
     Indication: BLOOD PRESSURE INCREASED
     Dosage: UNK UKN, UNK

REACTIONS (1)
  - Cerebrovascular accident [Fatal]
